FAERS Safety Report 25677620 (Version 1)
Quarter: 2025Q3

REPORT INFORMATION
  Report Type: Spontaneous
  Country: EU (occurrence: EU)
  Receive Date: 20250813
  Receipt Date: 20250813
  Transmission Date: 20251020
  Serious: Yes (Other)
  Sender: MYLAN
  Company Number: EU-MLMSERVICE-20250331-PI464150-00221-2

PATIENT
  Age: 31 Year
  Sex: Female

DRUGS (4)
  1. METOPROLOL [Suspect]
     Active Substance: METOPROLOL
     Indication: Ventricular extrasystoles
     Dosage: 100 MILLIGRAM, QD
  2. SPIRONOLACTONE [Concomitant]
     Active Substance: SPIRONOLACTONE
     Indication: Product used for unknown indication
     Dosage: 25 MILLIGRAM, QD
  3. SOTALOL [Concomitant]
     Active Substance: SOTALOL
     Indication: Ventricular extrasystoles
     Dosage: 240 MILLIGRAM, QD
  4. ZOFENOPRIL [Concomitant]
     Active Substance: ZOFENOPRIL
     Indication: Blood pressure increased

REACTIONS (4)
  - Ventricular extrasystoles [Recovering/Resolving]
  - Condition aggravated [Recovering/Resolving]
  - Treatment noncompliance [Recovered/Resolved]
  - Drug ineffective [Recovered/Resolved]
